FAERS Safety Report 5619925-4 (Version None)
Quarter: 2008Q1

REPORT INFORMATION
  Report Type: 
  Country: None (occurrence: None)
  Receive Date: 20080208
  Receipt Date: 20071228
  Transmission Date: 20080703
  Serious: No
  Sender: FDA-Public Use
  Company Number: US-ABBOTT-08P-163-0432164-00

PATIENT
  Age: 57 Year
  Sex: Female

DRUGS (2)
  1. VICODIN [Suspect]
     Indication: ARTHRALGIA
     Dates: start: 20040101
  2. VICODIN [Suspect]
     Indication: JOINT SWELLING

REACTIONS (2)
  - DRUG INEFFECTIVE [None]
  - PAIN [None]
